FAERS Safety Report 20779944 (Version 2)
Quarter: 2022Q2

REPORT INFORMATION
  Report Type: Spontaneous
  Country: US (occurrence: US)
  Receive Date: 20220503
  Receipt Date: 20220617
  Transmission Date: 20220720
  Serious: No
  Sender: FDA-Public Use
  Company Number: US-NOVARTISPH-NVSC2022US100892

PATIENT
  Age: 54 Year
  Sex: Male
  Weight: 90.3 kg

DRUGS (3)
  1. IBUPROFEN [Suspect]
     Active Substance: IBUPROFEN
     Indication: Rheumatoid arthritis
     Dosage: 400 MG, PRN
     Route: 048
     Dates: start: 20190101, end: 20190115
  2. SELADELPAR [Concomitant]
     Active Substance: SELADELPAR
     Indication: Primary biliary cholangitis
     Dosage: UNK UNK, QD
     Route: 065
  3. VOLTAREN [Concomitant]
     Active Substance: DICLOFENAC SODIUM
     Indication: Rheumatoid arthritis
     Dosage: UNK UNK, PRN
     Route: 061
     Dates: start: 20190112, end: 20190130

REACTIONS (1)
  - Liver function test increased [Recovered/Resolved]
